FAERS Safety Report 7988535-6 (Version None)
Quarter: 2011Q4

REPORT INFORMATION
  Report Type: 
  Country: None (occurrence: None)
  Receive Date: 20111218
  Receipt Date: 20111207
  Transmission Date: 20120403
  Serious: Yes (Other)
  Sender: FDA-Public Use
  Company Number: US-ASTRAZENECA-2011SE56904

PATIENT
  Age: 57 Year
  Sex: Female

DRUGS (3)
  1. SEROQUEL XR [Suspect]
     Route: 048
  2. NEXIUM [Suspect]
     Route: 048
  3. LIALDA [Concomitant]

REACTIONS (8)
  - GASTRIC CANCER [None]
  - DISABILITY [None]
  - CROHN'S DISEASE [None]
  - IMPAIRED DRIVING ABILITY [None]
  - DRUG WITHDRAWAL SYNDROME [None]
  - INSOMNIA [None]
  - DRUG DOSE OMISSION [None]
  - CARDIAC DISORDER [None]
